FAERS Safety Report 9055321 (Version 3)
Quarter: 2013Q1

REPORT INFORMATION
  Report Type: Spontaneous
  Country: US (occurrence: US)
  Receive Date: 20130206
  Receipt Date: 20130227
  Transmission Date: 20140127
  Serious: Yes (Death)
  Sender: FDA-Public Use
  Company Number: US-ROCHE-1188088

PATIENT
  Age: 97 None
  Sex: Male

DRUGS (6)
  1. TAMIFLU [Suspect]
     Indication: INFLUENZA
     Route: 065
     Dates: start: 20090312
  2. LASIX [Concomitant]
     Route: 048
  3. LEVOXYL [Concomitant]
     Indication: HYPOTHYROIDISM
     Route: 048
  4. NAMENDA [Concomitant]
     Route: 048
  5. ZANTAC [Concomitant]
     Route: 048
  6. MIDODRINE [Concomitant]
     Indication: HYPOTENSION
     Route: 048

REACTIONS (4)
  - Death [Fatal]
  - Abasia [Unknown]
  - Asthenia [Recovered/Resolved]
  - Confusional state [Recovered/Resolved]
